FAERS Safety Report 4465351-3 (Version None)
Quarter: 2004Q3

REPORT INFORMATION
  Report Type: 
  Country: None (occurrence: None)
  Receive Date: 20040929
  Receipt Date: 20040921
  Transmission Date: 20050211
  Serious: Yes (Hospitalization)
  Sender: FDA-Public Use
  Company Number: 2004UW14318

PATIENT
  Age: 29 Year
  Sex: Male
  Weight: 76.2043 kg

DRUGS (6)
  1. SEROQUEL [Suspect]
     Indication: SCHIZOAFFECTIVE DISORDER
     Dosage: 300 MG DAILY PO
     Route: 048
     Dates: start: 20040317, end: 20040707
  2. SEROQUEL [Suspect]
     Indication: SCHIZOAFFECTIVE DISORDER
     Dosage: 500 MG DAILY PO
     Route: 048
     Dates: start: 20040708
  3. TUMS [Concomitant]
  4. COGENTIN [Concomitant]
  5. DEPAKOTE [Concomitant]
  6. NICODERM [Concomitant]

REACTIONS (6)
  - ANXIETY [None]
  - CONDITION AGGRAVATED [None]
  - EXTRAPYRAMIDAL DISORDER [None]
  - INSOMNIA [None]
  - SCHIZOAFFECTIVE DISORDER [None]
  - URINE CANNABINOIDS INCREASED [None]
